FAERS Safety Report 8426204-9 (Version None)
Quarter: 2012Q2

REPORT INFORMATION
  Report Type: 
  Country: None (occurrence: None)
  Receive Date: 20120611
  Receipt Date: 20120211
  Transmission Date: 20120825
  Serious: No
  Sender: FDA-Public Use
  Company Number: US-MYLANLABS-2012S1003364

PATIENT

DRUGS (1)
  1. CYCLOBENZAPRINE [Suspect]

REACTIONS (5)
  - CHEST PAIN [None]
  - HEMIPARESIS [None]
  - GASTROINTESTINAL HYPERMOTILITY [None]
  - FLATULENCE [None]
  - DYSPNOEA [None]
